FAERS Safety Report 8051267-2 (Version None)
Quarter: 2012Q1

REPORT INFORMATION
  Report Type: 
  Country: None (occurrence: None)
  Receive Date: 20120117
  Receipt Date: 20120112
  Transmission Date: 20120608
  Serious: Yes (Death, Other)
  Sender: FDA-Public Use
  Company Number: PHHY2012US003431

PATIENT
  Age: 56 Year

DRUGS (2)
  1. PREDNISOLONE [Suspect]
     Dosage: UNK UKN, UNK
  2. INFLIXIMAB [Suspect]
     Indication: PSORIATIC ARTHROPATHY
     Dosage: UNK UKN, UNK

REACTIONS (2)
  - PNEUMONIA LEGIONELLA [None]
  - SEPTIC SHOCK [None]
